FAERS Safety Report 21322016 (Version 1)
Quarter: 2022Q3

REPORT INFORMATION
  Report Type: Spontaneous
  Country: US (occurrence: None)
  Receive Date: 20220909
  Receipt Date: 20220909
  Transmission Date: 20221027
  Serious: Yes (Hospitalization)
  Sender: FDA-Public Use
  Company Number: None

PATIENT
  Age: 69 Year
  Sex: Male
  Weight: 103.5 kg

DRUGS (4)
  1. PAXLOVID [Suspect]
     Active Substance: NIRMATRELVIR\RITONAVIR
     Indication: COVID-19
     Dates: start: 20220805, end: 20220806
  2. Metformin HTCZ [Concomitant]
  3. Oxybutynin Atorvastatin [Concomitant]
  4. VITAMIN D3 [Concomitant]
     Active Substance: CHOLECALCIFEROL

REACTIONS (9)
  - Intentional product use issue [None]
  - Vomiting [None]
  - Pyrexia [None]
  - Asthenia [None]
  - Discomfort [None]
  - Pain [None]
  - Oxygen saturation decreased [None]
  - Delirium [None]
  - Nausea [None]

NARRATIVE: CASE EVENT DATE: 20220806
